FAERS Safety Report 9535812 (Version 12)
Quarter: 2016Q3

REPORT INFORMATION
  Report Type: Report from Study
  Country: CA (occurrence: CA)
  Receive Date: 20130919
  Receipt Date: 20160920
  Transmission Date: 20161109
  Serious: Yes (Other)
  Sender: FDA-Public Use
  Company Number: CA-ROCHE-1277501

PATIENT
  Age: 69 Year
  Sex: Female

DRUGS (13)
  1. ACETAMINOPHEN. [Concomitant]
     Active Substance: ACETAMINOPHEN
     Indication: PREMEDICATION
     Route: 048
     Dates: start: 20130926
  2. AZATHIOPRINE. [Concomitant]
     Active Substance: AZATHIOPRINE
  3. PANTOLOC [Concomitant]
     Active Substance: PANTOPRAZOLE SODIUM
  4. CYCLOBENZAPRINE [Concomitant]
     Active Substance: CYCLOBENZAPRINE
     Dosage: 0.5 MG TABLETS
     Route: 048
     Dates: start: 20151106
  5. ACCUPRIL [Concomitant]
     Active Substance: QUINAPRIL HYDROCHLORIDE
     Route: 065
  6. RITUXAN [Suspect]
     Active Substance: RITUXIMAB
     Indication: RHEUMATOID ARTHRITIS
     Dosage: ON 26/SEP/2013, RECEIVED MOST RECENT DOSE PRIOR TO EVENT, RITUXIMAB 10MG/ML INTRAVENOUS VIAL
     Route: 042
     Dates: start: 20080710
  7. LETROZOLE. [Concomitant]
     Active Substance: LETROZOLE
     Route: 065
  8. RITUXAN [Suspect]
     Active Substance: RITUXIMAB
     Indication: BREAST CANCER
  9. TECTA [Concomitant]
     Active Substance: PANTOPRAZOLE MAGNESIUM
     Route: 065
  10. QUINAPRIL. [Concomitant]
     Active Substance: QUINAPRIL
     Dosage: TAKING FROM MORE THAN 5 YEARS
     Route: 048
  11. DIPHENHYDRAMINE HCL [Concomitant]
     Active Substance: DIPHENHYDRAMINE HYDROCHLORIDE
     Indication: PREMEDICATION
     Route: 048
     Dates: start: 20130926
  12. METHYLPREDNISOLONE. [Concomitant]
     Active Substance: METHYLPREDNISOLONE
     Indication: PREMEDICATION
     Route: 042
     Dates: start: 20130926
  13. TECTA [Concomitant]
     Active Substance: PANTOPRAZOLE MAGNESIUM
     Route: 048
     Dates: start: 20160912

REACTIONS (18)
  - Hypotension [Unknown]
  - Biliary colic [Unknown]
  - Joint swelling [Unknown]
  - Gastrooesophageal reflux disease [Unknown]
  - Infusion related reaction [Unknown]
  - Heart rate increased [Not Recovered/Not Resolved]
  - Diarrhoea [Recovered/Resolved]
  - Rheumatoid arthritis [Unknown]
  - Blood pressure fluctuation [Unknown]
  - Breast cancer [Not Recovered/Not Resolved]
  - Muscle spasms [Recovered/Resolved]
  - Off label use [Unknown]
  - Drug ineffective [Unknown]
  - Blood pressure increased [Not Recovered/Not Resolved]
  - Heart rate increased [Not Recovered/Not Resolved]
  - Anxiety [Unknown]
  - Arthralgia [Unknown]
  - Blood pressure increased [Unknown]

NARRATIVE: CASE EVENT DATE: 20130926
